FAERS Safety Report 5209299-5 (Version None)
Quarter: 2007Q1

REPORT INFORMATION
  Report Type: 
  Country: None (occurrence: None)
  Receive Date: 20070116
  Receipt Date: 20070104
  Transmission Date: 20070707
  Serious: Yes (Hospitalization)
  Sender: FDA-Public Use
  Company Number: DE-SANOFI-SYNTHELABO-A04200601083

PATIENT
  Sex: Male
  Weight: 80 kg

DRUGS (13)
  1. PLAVIX [Suspect]
     Indication: CEREBROVASCULAR ACCIDENT
     Route: 048
     Dates: start: 20060601, end: 20060714
  2. PERENTEROL FORTE [Concomitant]
     Indication: DRUG USE FOR UNKNOWN INDICATION
     Route: 048
     Dates: start: 20060718
  3. NEXIUM [Concomitant]
     Indication: DRUG USE FOR UNKNOWN INDICATION
     Route: 048
     Dates: start: 20060717
  4. CIPRALEX [Concomitant]
     Indication: DEPRESSION
     Route: 048
     Dates: start: 20060714, end: 20060717
  5. VESDIL [Concomitant]
     Indication: DRUG USE FOR UNKNOWN INDICATION
     Route: 048
     Dates: start: 20060712
  6. NOOTROP [Concomitant]
     Indication: APHASIA
     Dosage: UNK
     Route: 048
     Dates: start: 20060711, end: 20060717
  7. CLEXANE [Concomitant]
     Indication: THROMBOSIS PROPHYLAXIS
     Route: 058
     Dates: end: 20060714
  8. AMARYL [Concomitant]
     Indication: DIABETES MELLITUS
     Route: 048
  9. SIMVAHEXAL [Concomitant]
     Indication: HYPERCHOLESTEROLAEMIA
     Route: 048
  10. CORVATON [Concomitant]
     Indication: CORONARY ARTERY DISEASE
     Route: 048
  11. ISOKET [Concomitant]
     Indication: CORONARY ARTERY DISEASE
     Route: 048
  12. DELIX 5 PLUS [Concomitant]
     Indication: HYPERTENSION
     Route: 048
     Dates: end: 20060712
  13. BELOC ZOK [Concomitant]
     Indication: HYPERTENSION
     Dosage: UNK
     Route: 048

REACTIONS (6)
  - ACQUIRED HAEMOPHILIA WITH ANTI FVIII, XI, OR XIII [None]
  - ACTIVATED PARTIAL THROMBOPLASTIN TIME PROLONGED [None]
  - ANAL HAEMORRHAGE [None]
  - GASTROINTESTINAL HAEMORRHAGE [None]
  - HAEMATURIA [None]
  - MELAENA [None]
